FAERS Safety Report 5727160-4 (Version None)
Quarter: 2008Q2

REPORT INFORMATION
  Report Type: 
  Country: None (occurrence: None)
  Receive Date: 20080505
  Receipt Date: 20080428
  Transmission Date: 20081010
  Serious: Yes (Hospitalization)
  Sender: FDA-Public Use
  Company Number: FR-BRISTOL-MYERS SQUIBB COMPANY-14169601

PATIENT
  Age: 59 Year
  Sex: Female

DRUGS (6)
  1. IRBESARTAN [Suspect]
     Indication: HYPERTENSION
  2. ENBREL [Suspect]
     Dates: start: 20050101
  3. METHOTREXATE SODIUM [Suspect]
     Dates: start: 20050101
  4. CORTANCYL [Suspect]
     Dosage: ALSO TAKEN 1 MG DOSES.
  5. VOLTAREN [Suspect]
     Indication: RHEUMATOID ARTHRITIS
     Dosage: VOTARENE LP
  6. OMEPRAZOLE [Suspect]

REACTIONS (6)
  - DYSPNOEA [None]
  - HEADACHE [None]
  - HYPERTHERMIA [None]
  - MALAISE [None]
  - THROMBOCYTOPENIA [None]
  - WEIGHT DECREASED [None]
